FAERS Safety Report 8409817-X (Version None)
Quarter: 2012Q2

REPORT INFORMATION
  Report Type: 
  Country: None (occurrence: None)
  Receive Date: 20120605
  Receipt Date: 20120530
  Transmission Date: 20120825
  Serious: Yes (Other)
  Sender: FDA-Public Use
  Company Number: US-PFIZER INC-2012063370

PATIENT
  Sex: Male
  Weight: 91 kg

DRUGS (4)
  1. SUTENT [Suspect]
     Indication: METASTATIC RENAL CELL CARCINOMA
     Dosage: 50 MG, 1X/DAY, CYCLIC
     Dates: start: 20120216
  2. GLIPIZIDE [Concomitant]
     Dosage: ONE-HALF TAB DAILY
  3. SUTENT [Suspect]
     Dosage: 37.5 MG 3X12.5 MG CAPSULES FROM 30MAY2012 ,FOR TWO WEEKS AND REST FOR ONE WEEK
     Dates: start: 20120530
  4. LORAZEPAM [Concomitant]
     Dosage: AS NEEDED

REACTIONS (18)
  - BACK PAIN [None]
  - BLISTER [None]
  - DRY SKIN [None]
  - PLATELET COUNT DECREASED [None]
  - WEIGHT DECREASED [None]
  - HAEMORRHAGE [None]
  - HYPERTENSION [None]
  - GLOSSODYNIA [None]
  - BLOOD COUNT ABNORMAL [None]
  - OCULAR HYPERAEMIA [None]
  - FATIGUE [None]
  - TESTICULAR DISORDER [None]
  - COUGH [None]
  - THROAT IRRITATION [None]
  - HEARING IMPAIRED [None]
  - SLEEP DISORDER [None]
  - CONTUSION [None]
  - YELLOW SKIN [None]
